FAERS Safety Report 24296064 (Version 5)
Quarter: 2025Q4

REPORT INFORMATION
  Report Type: Report from Study
  Country: GB (occurrence: GB)
  Receive Date: 20240909
  Receipt Date: 20251014
  Transmission Date: 20260118
  Serious: Yes (Hospitalization, Other)
  Sender: AMGEN
  Company Number: GB-Vifor (International) Inc.-VIT-2024-07781

PATIENT
  Age: 73 Year
  Sex: Female
  Weight: 60.1 kg

DRUGS (7)
  1. AVACOPAN [Suspect]
     Active Substance: AVACOPAN
     Indication: Anti-neutrophil cytoplasmic antibody positive vasculitis
     Dosage: 30,MG,BID
     Route: 048
     Dates: start: 20240812, end: 20240819
  2. RITUXIMAB [Concomitant]
     Active Substance: RITUXIMAB
     Indication: Anti-neutrophil cytoplasmic antibody positive vasculitis
     Dosage: 1 GRAM, AS NECESSARY
     Route: 040
     Dates: start: 20240807, end: 20240807
  3. RITUXIMAB [Concomitant]
     Active Substance: RITUXIMAB
     Dosage: 1 GRAM, AS NECESSARY
     Route: 040
     Dates: start: 20240819, end: 20240819
  4. RITUXIMAB [Concomitant]
     Active Substance: RITUXIMAB
     Dosage: 1 G, TOT
     Route: 040
     Dates: start: 20250212, end: 20250212
  5. RITUXIMAB [Concomitant]
     Active Substance: RITUXIMAB
     Dosage: 1000 MG, TOT
     Route: 040
     Dates: start: 20250818, end: 20250818
  6. PREDNISOLONE [Concomitant]
     Active Substance: PREDNISOLONE
     Indication: Anti-neutrophil cytoplasmic antibody positive vasculitis
     Dosage: 60 MG, OD, COMPLETION OF PLANNED COURSE
     Route: 048
     Dates: start: 20240702, end: 20240807
  7. PREDNISOLONE [Concomitant]
     Active Substance: PREDNISOLONE
     Dosage: 60 MG, OD, COMPLETION OF PLANNED COURSE
     Route: 048
     Dates: start: 20240823

REACTIONS (12)
  - Syncope [Recovered/Resolved with Sequelae]
  - Pharyngeal cancer [Not Recovered/Not Resolved]
  - Bladder outlet obstruction [Not Recovered/Not Resolved]
  - Confusional state [Not Recovered/Not Resolved]
  - Weight decreased [Not Recovered/Not Resolved]
  - Bladder trabeculation [Not Recovered/Not Resolved]
  - Anxiety [Not Recovered/Not Resolved]
  - Lethargy [Not Recovered/Not Resolved]
  - Headache [Not Recovered/Not Resolved]
  - Abdominal pain [Recovered/Resolved]
  - Cystitis [Not Recovered/Not Resolved]
  - Dysphagia [Not Recovered/Not Resolved]

NARRATIVE: CASE EVENT DATE: 20240812
